FAERS Safety Report 10009298 (Version 3)
Quarter: 2015Q3

REPORT INFORMATION
  Report Type: Spontaneous
  Country: US (occurrence: US)
  Receive Date: 20140313
  Receipt Date: 20150814
  Transmission Date: 20151125
  Serious: No
  Sender: FDA-Public Use
  Company Number: US-GILEAD-2013-0071786

PATIENT
  Age: 64 Year
  Sex: Female

DRUGS (3)
  1. REMODULIN [Concomitant]
     Active Substance: TREPROSTINIL
  2. LETAIRIS [Suspect]
     Active Substance: AMBRISENTAN
     Indication: PULMONARY HYPERTENSION
     Dosage: 5 MG, QD
     Route: 048
     Dates: start: 20111205
  3. LETAIRIS [Suspect]
     Active Substance: AMBRISENTAN
     Indication: SCLERODERMA

REACTIONS (2)
  - Sinus congestion [Recovering/Resolving]
  - Nasal congestion [Recovering/Resolving]
